FAERS Safety Report 12195832 (Version 1)
Quarter: 2016Q1

REPORT INFORMATION
  Report Type: Spontaneous
  Country: US (occurrence: US)
  Receive Date: 20160321
  Receipt Date: 20160321
  Transmission Date: 20160526
  Serious: No
  Sender: FDA-Public Use
  Company Number: US-B.I. PHARMACEUTICALS,INC./RIDGEFIELD-2016-BI-12394BP

PATIENT
  Age: 21 Year
  Sex: Male
  Weight: 70.31 kg

DRUGS (3)
  1. MOBIC [Suspect]
     Active Substance: MELOXICAM
     Indication: SPINAL OSTEOARTHRITIS
  2. MOBIC [Suspect]
     Active Substance: MELOXICAM
     Indication: JOINT SWELLING
     Dosage: 7.5 MG
     Route: 048
     Dates: start: 20160210, end: 20160224
  3. MOBIC [Suspect]
     Active Substance: MELOXICAM
     Indication: INTERVERTEBRAL DISC PROTRUSION

REACTIONS (2)
  - Photosensitivity reaction [Not Recovered/Not Resolved]
  - Off label use [Unknown]

NARRATIVE: CASE EVENT DATE: 20160210
